FAERS Safety Report 4339415-9 (Version None)
Quarter: 2004Q2

REPORT INFORMATION
  Report Type: 
  Country: None (occurrence: None)
  Receive Date: 20040415
  Receipt Date: 20040402
  Transmission Date: 20050107
  Serious: Yes (Hospitalization)
  Sender: FDA-Public Use
  Company Number: PHBS2004CA04583

PATIENT
  Age: 50 Year
  Sex: Male
  Weight: 86 kg

DRUGS (3)
  1. DIOVAN [Suspect]
     Indication: HYPERTENSION
     Dosage: 80 MG, QD
     Route: 048
     Dates: start: 20040325, end: 20040325
  2. ASAPHEN [Concomitant]
     Dosage: 80 MG/DAY
  3. ATIVAN [Concomitant]
     Dosage: 1 DF, PRN

REACTIONS (4)
  - DIARRHOEA [None]
  - GASTROENTERITIS [None]
  - HEART RATE DECREASED [None]
  - HYPOTENSION [None]
